FAERS Safety Report 5107056-1 (Version None)
Quarter: 2006Q3

REPORT INFORMATION
  Report Type: 
  Country: None (occurrence: None)
  Receive Date: 20060913
  Receipt Date: 20060828
  Transmission Date: 20061208
  Serious: Yes (Hospitalization)
  Sender: FDA-Public Use
  Company Number: DSA_28641_2006

PATIENT
  Age: 79 Year
  Sex: Male

DRUGS (9)
  1. ENALAPRIL MALEATE AND HYDROCHLOROTHIAZIDE [Suspect]
     Indication: HYPERTENSION
     Dosage: DF UNK PO
     Route: 048
     Dates: start: 20060728, end: 20060801
  2. ENALAPRIL MALEATE [Concomitant]
  3. HEPARIN [Concomitant]
  4. ANTIBIOTIC [Concomitant]
  5. CITALOPRAM HYDROBROMIDE [Concomitant]
  6. FLUINDIONE [Concomitant]
  7. FOLIC ACID [Concomitant]
  8. FUROSEMIDE [Concomitant]
  9. PREDNISONE [Concomitant]

REACTIONS (4)
  - CONDITION AGGRAVATED [None]
  - LUNG INFECTION [None]
  - NEUTROPENIA [None]
  - RENAL FAILURE [None]
